FAERS Safety Report 11512425 (Version 1)
Quarter: 2015Q3

REPORT INFORMATION
  Report Type: Spontaneous
  Country: FR (occurrence: None)
  Receive Date: 20150914
  Receipt Date: 20150914
  Transmission Date: 20151125
  Serious: Yes (Life-Threatening, Hospitalization)
  Sender: FDA-Public Use
  Company Number: CC400269210

PATIENT
  Age: 23 Month
  Sex: Male

DRUGS (8)
  1. NUTRILIPID I.V. FAT EMULSION [Suspect]
     Active Substance: SOYBEAN OIL
     Route: 042
  2. AUGMENTIN [Concomitant]
     Active Substance: AMOXICILLIN\CLAVULANATE POTASSIUM
  3. PEDIAVEN [Concomitant]
  4. CERNEVIT [Concomitant]
     Active Substance: VITAMINS
  5. COLIMYCINE (AEROSOL) [Concomitant]
  6. PARACETAMOL [Concomitant]
     Active Substance: ACETAMINOPHEN
  7. GLUCIDION [Concomitant]
     Active Substance: GLUCOSE, LIQUID\POTASSIUM CHLORIDE\SODIUM CHLORIDE
  8. ESOMEPRAZOLE [Concomitant]
     Active Substance: ESOMEPRAZOLE

REACTIONS (10)
  - Accidental overdose [None]
  - Acute respiratory failure [None]
  - Tachypnoea [None]
  - Hypertriglyceridaemia [None]
  - Electrocardiogram ST segment abnormal [None]
  - Incorrect drug administration rate [None]
  - Venous oxygen saturation decreased [None]
  - Electrocardiogram QT prolonged [None]
  - Hyperhidrosis [None]
  - Hypokalaemia [None]

NARRATIVE: CASE EVENT DATE: 20150807
